FAERS Safety Report 16510254 (Version 1)
Quarter: 2019Q3

REPORT INFORMATION
  Report Type: Spontaneous
  Country: US (occurrence: US)
  Receive Date: 20190701
  Receipt Date: 20190701
  Transmission Date: 20191004
  Serious: Yes (Hospitalization)
  Sender: FDA-Public Use
  Company Number: None

PATIENT
  Age: 72 Year
  Sex: Female

DRUGS (4)
  1. VIT E COMPLX, SULFASALAZIN, PREDNISONE, ATENOLOL, FISH OIL [Concomitant]
  2. AMOX/K CLAV, ADVAIR, IRON, CALCUIM, CHOLESTOFF [Concomitant]
  3. XELJANZ [Suspect]
     Active Substance: TOFACITINIB CITRATE
     Indication: RHEUMATOID ARTHRITIS
     Route: 048
     Dates: start: 20170223
  4. MULTI VIT, MUCINEX, LOVAZA, ALBUTEROL, WIXELA INHUB [Concomitant]

REACTIONS (4)
  - Spinal fusion surgery [None]
  - Joint stiffness [None]
  - Nerve compression [None]
  - Hypoaesthesia [None]

NARRATIVE: CASE EVENT DATE: 20190425
